FAERS Safety Report 9908657 (Version 1)
Quarter: 2014Q1

REPORT INFORMATION
  Report Type: Spontaneous
  Country: US (occurrence: None)
  Receive Date: 20140211
  Receipt Date: 20140211
  Transmission Date: 20141002
  Serious: Yes (Death)
  Sender: FDA-Public Use
  Company Number: AUR-APL-2014-01094

PATIENT
  Age: 50 Year
  Sex: Female

DRUGS (9)
  1. CITALOPRAM(CITALOPRAM) [Suspect]
  2. HEROIN (DIAMORPHINE) (DIAMORPHINE) [Suspect]
     Route: 051
  3. COCAINE (COCAINE) [Suspect]
  4. TRAMADOL(TRAMADOL) [Suspect]
  5. DEXTROMETHORPHAN (DEXTROMETHORPHAN) [Suspect]
  6. DIPHENHYDRAMINE (DIPHENHYDRAMINE) [Suspect]
  7. HYDROXYZINE (HYDROXYZINE) [Suspect]
  8. QUININE [Suspect]
  9. ETHANOL [Concomitant]

REACTIONS (3)
  - Drug abuse [None]
  - Toxicity to various agents [None]
  - Exposure via ingestion [None]
